FAERS Safety Report 7601405-8 (Version None)
Quarter: 2011Q2

REPORT INFORMATION
  Report Type: 
  Country: None (occurrence: None)
  Receive Date: 20110629
  Receipt Date: 20110615
  Transmission Date: 20111010
  Serious: Yes (Death, Life-Threatening, Hospitalization)
  Sender: FDA-Public Use
  Company Number: 2011MA007214

PATIENT
  Age: 58 Year
  Sex: Female

DRUGS (5)
  1. FLUOXETINE [Suspect]
  2. TEMAZEPAM [Concomitant]
  3. TRAZODONE HCL [Concomitant]
  4. ESCITALOPRAM [Concomitant]
  5. BUSPIRONE HCL [Concomitant]

REACTIONS (8)
  - VENTRICULAR FIBRILLATION [None]
  - TORSADE DE POINTES [None]
  - COMA [None]
  - LONG QT SYNDROME [None]
  - MALAISE [None]
  - SINUS TACHYCARDIA [None]
  - CARDIAC ARREST [None]
  - APNOEA [None]
